FAERS Safety Report 8600846 (Version 3)
Quarter: 2013Q1

REPORT INFORMATION
  Report Type: Report from Study
  Country: US (occurrence: US)
  Receive Date: 20120606
  Receipt Date: 20130207
  Transmission Date: 20140127
  Serious: Yes (Other)
  Sender: FDA-Public Use
  Company Number: PHHY2012US047121

PATIENT
  Sex: 0
  Weight: 2.79 kg

DRUGS (3)
  1. TASIGNA [Suspect]
     Route: 064
  2. TYLENOL [Suspect]
     Indication: PAIN
  3. CODEINE [Suspect]
     Indication: PAIN

REACTIONS (3)
  - Premature baby [Unknown]
  - Drug withdrawal syndrome [Unknown]
  - Foetal exposure during pregnancy [Unknown]
